FAERS Safety Report 4466146-7 (Version None)
Quarter: 2004Q4

REPORT INFORMATION
  Report Type: 
  Country: None (occurrence: None)
  Receive Date: 20041005
  Receipt Date: 20040924
  Transmission Date: 20050328
  Serious: Yes (Hospitalization)
  Sender: FDA-Public Use
  Company Number: US-JNJFOC-20040908674

PATIENT
  Age: 59 Year
  Sex: Female

DRUGS (2)
  1. DURAGESIC [Suspect]
     Route: 062
  2. DURAGESIC [Suspect]
     Route: 062

REACTIONS (3)
  - LETHARGY [None]
  - OVERDOSE [None]
  - RESPIRATORY TRACT INFECTION [None]
